FAERS Safety Report 10263190 (Version 2)
Quarter: 2014Q2

REPORT INFORMATION
  Report Type: Report from Study
  Country: US (occurrence: US)
  Receive Date: 20140626
  Receipt Date: 20140626
  Transmission Date: 20141212
  Serious: Yes (Life-Threatening, Other)
  Sender: FDA-Public Use
  Company Number: US-MYLANLABS-2014S1005728

PATIENT
  Age: 30 Year
  Sex: Female

DRUGS (8)
  1. CLOZAPINE TABLETS [Suspect]
     Indication: SCHIZOAFFECTIVE DISORDER
     Route: 048
     Dates: start: 20140131, end: 2014
  2. CLOZAPINE TABLETS [Suspect]
     Indication: BORDERLINE PERSONALITY DISORDER
     Route: 048
     Dates: start: 20140131, end: 2014
  3. CLOZAPINE TABLETS [Suspect]
     Indication: SCHIZOAFFECTIVE DISORDER
     Route: 048
     Dates: start: 2014, end: 20140306
  4. CLOZAPINE TABLETS [Suspect]
     Indication: BORDERLINE PERSONALITY DISORDER
     Route: 048
     Dates: start: 2014, end: 20140306
  5. CLOZAPINE TABLETS [Suspect]
     Indication: SCHIZOAFFECTIVE DISORDER
     Route: 048
     Dates: start: 2014, end: 20140306
  6. CLOZAPINE TABLETS [Suspect]
     Indication: BORDERLINE PERSONALITY DISORDER
     Route: 048
     Dates: start: 2014, end: 20140306
  7. LITHIUM [Concomitant]
     Route: 048
  8. EFFEXOR [Concomitant]
     Route: 048

REACTIONS (3)
  - Agranulocytosis [Recovered/Resolved]
  - Granulocytopenia [Not Recovered/Not Resolved]
  - Leukopenia [Recovered/Resolved]
